FAERS Safety Report 5956650-4 (Version None)
Quarter: 2008Q4

REPORT INFORMATION
  Report Type: 
  Country: None (occurrence: None)
  Receive Date: 20081117
  Receipt Date: 20081117
  Transmission Date: 20090506
  Serious: No
  Sender: FDA-Public Use
  Company Number: None

PATIENT
  Age: 76 Year
  Sex: Male
  Weight: 64.5 kg

DRUGS (1)
  1. ADALIMUMAB [Suspect]
     Indication: DERMATITIS PSORIASIFORM
     Dosage: 40 MG OTHER SQ
     Route: 058
     Dates: start: 20080930, end: 20081013

REACTIONS (10)
  - ABNORMAL BEHAVIOUR [None]
  - ANXIETY [None]
  - CRYING [None]
  - DEPRESSION [None]
  - FEELING ABNORMAL [None]
  - HYPOMANIA [None]
  - INAPPROPRIATE AFFECT [None]
  - IRRITABILITY [None]
  - MANIA [None]
  - MOOD SWINGS [None]
